FAERS Safety Report 24872777 (Version 1)
Quarter: 2025Q1

REPORT INFORMATION
  Report Type: Report from Study
  Country: US (occurrence: US)
  Receive Date: 20250122
  Receipt Date: 20250122
  Transmission Date: 20250409
  Serious: Yes (Other)
  Sender: NOVARTIS
  Company Number: US-002147023-NVSC2024US209405

PATIENT
  Sex: Male

DRUGS (1)
  1. KESIMPTA [Suspect]
     Active Substance: OFATUMUMAB
     Indication: Product used for unknown indication
     Route: 065
     Dates: start: 20240817

REACTIONS (9)
  - Neuropathy peripheral [Unknown]
  - Multiple sclerosis [Unknown]
  - Balance disorder [Unknown]
  - Asthenia [Unknown]
  - Dizziness [Unknown]
  - Back pain [Unknown]
  - Bladder disorder [Unknown]
  - Pain [Unknown]
  - Therapeutic product ineffective [Unknown]
